FAERS Safety Report 20517143 (Version 1)
Quarter: 2022Q1

REPORT INFORMATION
  Report Type: Spontaneous
  Country: US (occurrence: US)
  Receive Date: 20220225
  Receipt Date: 20220225
  Transmission Date: 20220423
  Serious: No
  Sender: FDA-Public Use
  Company Number: US-TEVA-2022-US-2008724

PATIENT
  Sex: Female

DRUGS (4)
  1. LORAZEPAM [Suspect]
     Active Substance: LORAZEPAM
     Indication: Panic disorder
     Dosage: 10 MILLIGRAM DAILY;
     Route: 065
  2. LORAZEPAM [Suspect]
     Active Substance: LORAZEPAM
     Dosage: DECREASE HER DOSAGE BY 0.5 MG A MONTH
     Route: 065
  3. CELEXA [Concomitant]
     Active Substance: CITALOPRAM HYDROBROMIDE
     Route: 065
  4. CELEXA [Concomitant]
     Active Substance: CITALOPRAM HYDROBROMIDE
     Dosage: SLOWLY INCREASING THAT MEDICATION TO 40 MG DAILY
     Route: 065

REACTIONS (3)
  - Product use in unapproved indication [Unknown]
  - Nervousness [Unknown]
  - Product formulation issue [Unknown]
